FAERS Safety Report 9722398 (Version 3)
Quarter: 2014Q1

REPORT INFORMATION
  Report Type: Report from Study
  Country: AT (occurrence: AT)
  Receive Date: 20131202
  Receipt Date: 20140218
  Transmission Date: 20141002
  Serious: Yes (Life-Threatening, Hospitalization)
  Sender: FDA-Public Use
  Company Number: AT-CELGENEUS-009-CC292-13114937

PATIENT
  Age: 56 Year
  Sex: Male
  Weight: 80 kg

DRUGS (7)
  1. CC-5013 [Suspect]
     Indication: CHRONIC LYMPHOCYTIC LEUKAEMIA
     Dosage: 5 MILLIGRAM
     Route: 048
     Dates: start: 20131113, end: 20131124
  2. CC-292 [Suspect]
     Indication: CHRONIC LYMPHOCYTIC LEUKAEMIA
     Dosage: 1000 MILLIGRAM
     Route: 048
     Dates: start: 20131119
  3. METOPROLOL SUCCINATE [Concomitant]
     Indication: HYPERTENSION
     Dosage: 15 MILLIGRAM
     Route: 048
  4. AMOXICILLIN/CLAVULANIC ACID [Concomitant]
     Indication: EPIDIDYMITIS
     Dosage: 3 GRAM
     Route: 048
     Dates: start: 20131105, end: 20131115
  5. VALGANCICLOVIR [Concomitant]
     Indication: CYTOMEGALOVIRUS INFECTION
     Dosage: 900 MILLIGRAM
     Route: 048
     Dates: start: 20130923, end: 20131112
  6. PIPERACILLIN/TAZOBACTAM [Concomitant]
     Indication: INFECTION PROPHYLAXIS
     Dosage: 13.5 GRAM
     Route: 041
     Dates: start: 20131115, end: 20131120
  7. MOXIFLOXACIN [Concomitant]
     Indication: INFECTION PROPHYLAXIS
     Dosage: 400 MILLIGRAM
     Route: 048
     Dates: start: 20131120, end: 20131123

REACTIONS (1)
  - Thrombocytopenia [Recovered/Resolved]
